FAERS Safety Report 7318699-9 (Version None)
Quarter: 2011Q1

REPORT INFORMATION
  Report Type: 
  Country: None (occurrence: None)
  Receive Date: 20110228
  Receipt Date: 20110221
  Transmission Date: 20110831
  Serious: Yes (Death)
  Sender: FDA-Public Use
  Company Number: IT-JNJFOC-20101107645

PATIENT
  Age: 70 Year
  Sex: Male
  Weight: 68 kg

DRUGS (22)
  1. CRESTOR [Concomitant]
     Indication: DYSLIPIDAEMIA
     Route: 048
  2. ZOFRAN [Concomitant]
     Route: 065
  3. PRILOSEC [Concomitant]
     Indication: PROPHYLAXIS
     Route: 048
  4. DEXAMETHASONE [Suspect]
     Indication: MULTIPLE MYELOMA
     Dosage: DAY 1-4
     Route: 042
  5. LASIX [Concomitant]
     Indication: FLUID RETENTION
     Route: 065
  6. EUTIROX [Concomitant]
     Indication: HYPOTHYROIDISM
     Route: 048
  7. DELTACORTENE [Concomitant]
     Route: 065
  8. ESKIM [Concomitant]
     Indication: DYSLIPIDAEMIA
     Route: 048
  9. LYRICA [Concomitant]
     Indication: NEUROPATHY PERIPHERAL
     Route: 048
  10. DEXAMETHASONE [Suspect]
     Dosage: DAY 1-4
     Route: 042
  11. OXYCONTIN [Concomitant]
     Indication: NEUROPATHY PERIPHERAL
     Route: 048
  12. OXYCONTIN [Concomitant]
     Indication: PROPHYLAXIS
     Route: 048
  13. ZOFRAN [Concomitant]
     Indication: PROPHYLAXIS OF NAUSEA AND VOMITING
     Route: 065
  14. BACTRIM [Concomitant]
     Indication: PROPHYLAXIS
     Route: 048
  15. TAVOR [Concomitant]
     Indication: ANXIETY
     Route: 048
  16. CAELYX [Suspect]
     Indication: MULTIPLE MYELOMA
     Dosage: CYCLE 4
     Route: 042
  17. VELCADE [Suspect]
     Indication: MULTIPLE MYELOMA
     Dosage: CYCLE 4
     Route: 042
  18. LASIX [Concomitant]
     Route: 065
  19. CLEXANE [Concomitant]
     Indication: PROPHYLAXIS
     Route: 058
  20. VELCADE [Suspect]
     Dosage: CYCLE 4
     Route: 042
  21. CAELYX [Suspect]
     Dosage: CYCLE 4
     Route: 042
  22. TAZOCIN [Concomitant]
     Indication: PYREXIA
     Route: 065

REACTIONS (1)
  - CEREBRAL HAEMORRHAGE [None]
